FAERS Safety Report 7041872-4 (Version None)
Quarter: 2010Q4

REPORT INFORMATION
  Report Type: 
  Country: None (occurrence: None)
  Receive Date: 20101013
  Receipt Date: 20101004
  Transmission Date: 20110411
  Serious: Yes (Death)
  Sender: FDA-Public Use
  Company Number: CA-ABBOTT-10P-028-0673968-00

PATIENT
  Sex: Male
  Weight: 61 kg

DRUGS (1)
  1. MAVIK [Suspect]
     Indication: ESSENTIAL HYPERTENSION
     Route: 048
     Dates: start: 20100803

REACTIONS (5)
  - CARDIAC ARREST [None]
  - FALL [None]
  - INJURY [None]
  - RESPIRATORY ARREST [None]
  - RIB FRACTURE [None]
